FAERS Safety Report 8986212 (Version 4)
Quarter: 2013Q2

REPORT INFORMATION
  Report Type: Report from Study
  Country: BR (occurrence: BR)
  Receive Date: 20121226
  Receipt Date: 20130506
  Transmission Date: 20140414
  Serious: Yes (Other)
  Sender: FDA-Public Use
  Company Number: BR-ROCHE-1074874

PATIENT
  Age: 28 Year
  Sex: Female
  Weight: 65 kg

DRUGS (10)
  1. ACTEMRA [Suspect]
     Indication: RHEUMATOID ARTHRITIS
     Route: 065
     Dates: start: 20120601, end: 201211
  2. BROMOPRIDE [Suspect]
     Indication: PRODUCT USED FOR UNKNOWN INDICATION
     Route: 065
     Dates: start: 20130425
  3. FAMOTIDINE [Suspect]
     Indication: PRODUCT USED FOR UNKNOWN INDICATION
     Route: 065
     Dates: start: 20130425
  4. ACECLOFENAC [Suspect]
     Indication: PRODUCT USED FOR UNKNOWN INDICATION
     Route: 065
     Dates: start: 20130425
  5. GLUCOSAMINE SULFATE [Concomitant]
  6. PREDNISONE [Concomitant]
     Indication: PRODUCT USED FOR UNKNOWN INDICATION
     Route: 065
  7. FAMOTIDINE D [Concomitant]
     Indication: PRODUCT USED FOR UNKNOWN INDICATION
  8. MELOXICAM [Concomitant]
     Indication: PRODUCT USED FOR UNKNOWN INDICATION
  9. DRAMIN [Concomitant]
     Route: 065
  10. ACETAMINOPHEN [Concomitant]

REACTIONS (7)
  - Syncope [Recovered/Resolved]
  - Arthralgia [Unknown]
  - Asthenia [Recovered/Resolved]
  - Rheumatoid nodule [Recovered/Resolved]
  - Rheumatoid nodule [Recovered/Resolved]
  - Tremor [Recovered/Resolved]
  - Nodule [Not Recovered/Not Resolved]
